FAERS Safety Report 23571558 (Version 1)
Quarter: 2024Q1

REPORT INFORMATION
  Report Type: Spontaneous
  Country: US (occurrence: US)
  Receive Date: 20240227
  Receipt Date: 20240227
  Transmission Date: 20240409
  Serious: Yes (Other)
  Sender: FDA-Public Use
  Company Number: US-BRISTOL-MYERS SQUIBB COMPANY-2024-028785

PATIENT
  Age: 84 Year
  Sex: Male

DRUGS (2)
  1. ORENCIA [Suspect]
     Active Substance: ABATACEPT
     Indication: Rheumatoid arthritis
     Route: 058
     Dates: start: 202003
  2. METHOXAMINE HYDROCHLORIDE\NEOMYCIN SULFATE\POLYMYXIN B SULFATE [Suspect]
     Active Substance: METHOXAMINE HYDROCHLORIDE\NEOMYCIN SULFATE\POLYMYXIN B SULFATE
     Indication: Post procedural infection

REACTIONS (2)
  - Post procedural infection [Unknown]
  - Skin irritation [Recovered/Resolved]
